FAERS Safety Report 7526792-0 (Version None)
Quarter: 2011Q2

REPORT INFORMATION
  Report Type: 
  Country: None (occurrence: None)
  Receive Date: 20110606
  Receipt Date: 20110531
  Transmission Date: 20111010
  Serious: Yes (Other)
  Sender: FDA-Public Use
  Company Number: US-PFIZER INC-2011118493

PATIENT
  Sex: Female
  Weight: 90.703 kg

DRUGS (11)
  1. XALATAN [Suspect]
     Indication: OPEN ANGLE GLAUCOMA
     Dosage: 1 DROP EACH EYE DAILY
     Route: 047
  2. VITAMIN D [Concomitant]
     Dosage: UNK
  3. MULTI-VITAMINS [Concomitant]
     Dosage: UNK
  4. AVAPRO [Concomitant]
     Indication: RENAL IMPAIRMENT
  5. METFORMIN [Concomitant]
     Indication: DIABETES MELLITUS
     Dosage: UNK
  6. GLIMEPIRIDE [Concomitant]
     Indication: DIABETES MELLITUS
     Dosage: UNK
  7. JANUVIA [Concomitant]
     Dosage: UNK
  8. VYTORIN [Concomitant]
     Dosage: UNK
  9. AVAPRO [Concomitant]
     Indication: BLOOD PRESSURE ABNORMAL
     Dosage: UNK
  10. ACETYLSALICYLIC ACID [Concomitant]
     Dosage: 81 MG, UNK
  11. CALCIUM [Concomitant]
     Dosage: UNK

REACTIONS (1)
  - SPINAL COMPRESSION FRACTURE [None]
